FAERS Safety Report 7576170-3 (Version None)
Quarter: 2011Q2

REPORT INFORMATION
  Report Type: 
  Country: None (occurrence: None)
  Receive Date: 20110623
  Receipt Date: 20110623
  Transmission Date: 20111010
  Serious: Yes (Hospitalization)
  Sender: FDA-Public Use
  Company Number: None

PATIENT
  Sex: Female
  Weight: 43 kg

DRUGS (2)
  1. TOPOTECAN [Suspect]
     Dosage: 3.18 MG
     Dates: end: 20091118
  2. TAXOL [Suspect]
     Dosage: 247 MG
     Dates: end: 20091116

REACTIONS (7)
  - VOMITING [None]
  - BACK PAIN [None]
  - NAUSEA [None]
  - ABDOMINAL PAIN [None]
  - HYDRONEPHROSIS [None]
  - FLATULENCE [None]
  - DISEASE PROGRESSION [None]
